FAERS Safety Report 23293472 (Version 2)
Quarter: 2024Q4

REPORT INFORMATION
  Report Type: Spontaneous
  Country: US (occurrence: US)
  Receive Date: 20231213
  Receipt Date: 20241213
  Transmission Date: 20250114
  Serious: No
  Sender: NOVO NORDISK
  Company Number: US-NOVOPROD-1077529

PATIENT
  Sex: Female

DRUGS (2)
  1. LEVEMIR [Suspect]
     Active Substance: INSULIN DETEMIR
     Indication: Product used for unknown indication
     Dosage: 20 IU
     Route: 058
     Dates: start: 20230427, end: 2023
  2. LEVEMIR [Suspect]
     Active Substance: INSULIN DETEMIR
     Dosage: 38 IU
     Route: 058

REACTIONS (5)
  - Dizziness [Recovered/Resolved]
  - Injection site urticaria [Not Recovered/Not Resolved]
  - Injection site mass [Unknown]
  - Injection site erythema [Unknown]
  - Drug effect less than expected [Unknown]
